FAERS Safety Report 25084433 (Version 1)
Quarter: 2025Q1

REPORT INFORMATION
  Report Type: Report from Study
  Country: CL (occurrence: CL)
  Receive Date: 20250317
  Receipt Date: 20250317
  Transmission Date: 20250409
  Serious: Yes (Other)
  Sender: JOHNSON AND JOHNSON
  Company Number: CL-JNJFOC-20250125191

PATIENT
  Age: 45 Year
  Sex: Female
  Weight: 110 kg

DRUGS (2)
  1. SIMPONI [Suspect]
     Active Substance: GOLIMUMAB
     Indication: Psoriatic arthropathy
     Dates: start: 202209
  2. SIMPONI [Suspect]
     Active Substance: GOLIMUMAB
     Dates: start: 20211020

REACTIONS (3)
  - Pneumonia [Unknown]
  - Headache [Not Recovered/Not Resolved]
  - Inflammation [Unknown]

NARRATIVE: CASE EVENT DATE: 20250101
